FAERS Safety Report 6476958-6 (Version None)
Quarter: 2009Q4

REPORT INFORMATION
  Report Type: 
  Country: None (occurrence: None)
  Receive Date: 20091207
  Receipt Date: 20091203
  Transmission Date: 20100525
  Serious: Yes (Life-Threatening, Hospitalization)
  Sender: FDA-Public Use
  Company Number: NO-B.I. PHARMACEUTICALS,INC./RIDGEFIELD-2009-SW-00300NO

PATIENT
  Sex: Female

DRUGS (7)
  1. MICARDIS HCT [Suspect]
     Indication: HYPERTENSION
     Dosage: 1 DF (DOSAGE FORM) ONCE DAILY
     Route: 048
  2. ERYMAX [Suspect]
     Indication: RESPIRATORY TRACT INFECTION
     Dosage: 1500 MG
     Route: 048
     Dates: end: 20080101
  3. GLUCOPHAGE [Suspect]
     Indication: DIABETES MELLITUS
     Dosage: 2000 MG
     Route: 048
     Dates: start: 19920101, end: 20080901
  4. INSULIN (HUMAN) [Concomitant]
     Indication: DIABETES MELLITUS
     Route: 058
     Dates: start: 19920101
  5. ALBYL-E [Concomitant]
     Indication: PROPHYLAXIS
     Dosage: 75 MG
     Route: 048
  6. SIMVASTATIN [Concomitant]
     Indication: BLOOD CHOLESTEROL INCREASED
     Dosage: 20 MG
     Route: 048
  7. ATENOLOL [Concomitant]
     Indication: HYPERTENSION
     Dosage: 50 MG
     Route: 048

REACTIONS (2)
  - LACTIC ACIDOSIS [None]
  - RENAL FAILURE ACUTE [None]
